FAERS Safety Report 21458286 (Version 4)
Quarter: 2022Q4

REPORT INFORMATION
  Report Type: Spontaneous
  Country: US (occurrence: US)
  Receive Date: 20221014
  Receipt Date: 20221215
  Transmission Date: 20230112
  Serious: Yes (Other)
  Sender: FDA-Public Use
  Company Number: US-PFIZER INC-202201227239

PATIENT
  Age: 47 Year
  Sex: Female
  Weight: 94.3 kg

DRUGS (15)
  1. IBRANCE [Suspect]
     Active Substance: PALBOCICLIB
     Indication: Breast cancer female
     Dosage: 125 MG, CYCLIC (1 TABLET IN THE MORNING FOR 3 WEEKS ON, AND 1 WEEK OFF)
     Route: 048
     Dates: start: 20220605
  2. IBRANCE [Suspect]
     Active Substance: PALBOCICLIB
     Indication: Metastases to bone
  3. IBRANCE [Suspect]
     Active Substance: PALBOCICLIB
     Indication: Metastases to lung
  4. LETROZOLE [Suspect]
     Active Substance: LETROZOLE
     Indication: Breast cancer
     Dosage: 2.5 MG, DAILY
     Route: 048
     Dates: start: 20220727
  5. LASIX [Concomitant]
     Active Substance: FUROSEMIDE
     Dosage: 40 MG, DAILY
     Route: 048
  6. POTASSIUM CHLORIDE [Concomitant]
     Active Substance: POTASSIUM CHLORIDE
     Dosage: 10 MEQ, DAILY
     Route: 048
  7. LORATADINE [Concomitant]
     Active Substance: LORATADINE
     Dosage: UNK
  8. ACETAMINOPHEN [Concomitant]
     Active Substance: ACETAMINOPHEN
     Dosage: UNK
  9. ZOLADEX [Concomitant]
     Active Substance: GOSERELIN ACETATE
     Indication: Hormone therapy
     Dosage: 3.6 MG, CYCLIC (3.6 MG EVERY 28 DAYS)
     Dates: start: 20220629
  10. XGEVA [Concomitant]
     Active Substance: DENOSUMAB
     Dosage: UNK
  11. ALBUTEROL [Concomitant]
     Active Substance: ALBUTEROL
     Dosage: UNK
  12. ERGOCALCIFEROL [Concomitant]
     Active Substance: ERGOCALCIFEROL
     Dosage: 1250 UG (50000 UNITS), WEEKLY
     Route: 048
  13. METHYLPREDNISOLONE [Concomitant]
     Active Substance: METHYLPREDNISOLONE
     Dosage: 3 DF, DAILY X 7 DAYS
     Route: 048
  14. POTASSIUM BICARBONATE/SODIUM BICARBONATE/SODIUM CITRATE [Concomitant]
  15. FEMARA [Concomitant]
     Active Substance: LETROZOLE
     Indication: Breast cancer
     Dosage: 2.5 MG, DAILY
     Route: 048
     Dates: start: 20220727

REACTIONS (6)
  - Neutropenia [Unknown]
  - White blood cell count decreased [Not Recovered/Not Resolved]
  - Hot flush [Recovering/Resolving]
  - Dyspnoea [Unknown]
  - Cough [Unknown]
  - Fatigue [Unknown]

NARRATIVE: CASE EVENT DATE: 20220824
